FAERS Safety Report 19205670 (Version 1)
Quarter: 2021Q2

REPORT INFORMATION
  Report Type: Spontaneous
  Country: US (occurrence: US)
  Receive Date: 20210503
  Receipt Date: 20210503
  Transmission Date: 20210717
  Serious: No
  Sender: FDA-Public Use
  Company Number: US-FARMAPROD-202101-0138

PATIENT
  Sex: Male

DRUGS (18)
  1. ERYTHROMYCIN. [Concomitant]
     Active Substance: ERYTHROMYCIN
  2. FINASTERIDE. [Concomitant]
     Active Substance: FINASTERIDE
  3. ELIQUIS [Concomitant]
     Active Substance: APIXABAN
  4. LATANOPROST. [Concomitant]
     Active Substance: LATANOPROST
  5. RAMIPRIL. [Concomitant]
     Active Substance: RAMIPRIL
  6. OXERVATE [Suspect]
     Active Substance: CENEGERMIN-BKBJ
     Indication: NEUROTROPHIC KERATOPATHY
     Route: 047
     Dates: start: 20210118
  7. ACETAZOLAMIDE. [Concomitant]
     Active Substance: ACETAZOLAMIDE
     Dosage: EXTENDED RELEASE CAPSULE
  8. BRIMONIDINE TARTRATE. [Concomitant]
     Active Substance: BRIMONIDINE TARTRATE
  9. ATORVASTATIN CALCIUM. [Concomitant]
     Active Substance: ATORVASTATIN CALCIUM
  10. BESIVANCE [Concomitant]
     Active Substance: BESIFLOXACIN
     Dosage: DROPS SUSPENSION
  11. DOXAZOSIN MESYLATE. [Concomitant]
     Active Substance: DOXAZOSIN MESYLATE
  12. OXERVATE [Suspect]
     Active Substance: CENEGERMIN-BKBJ
     Indication: ULCERATIVE KERATITIS
  13. METOPROLOL SUCCINATE. [Concomitant]
     Active Substance: METOPROLOL SUCCINATE
  14. TAMSULOSIN HYDROCHLORIDE. [Concomitant]
     Active Substance: TAMSULOSIN HYDROCHLORIDE
  15. GATIFLOXACIN. [Concomitant]
     Active Substance: GATIFLOXACIN
  16. DILTIAZEM. [Concomitant]
     Active Substance: DILTIAZEM
     Dosage: EXTENDED RELEASE CAPSULE
  17. PREDNISOLONE/NEPAFENAC [Concomitant]
  18. ALLOPURINOL. [Concomitant]
     Active Substance: ALLOPURINOL

REACTIONS (1)
  - Drug ineffective [Unknown]
